FAERS Safety Report 14931205 (Version 1)
Quarter: 2018Q2

REPORT INFORMATION
  Report Type: Spontaneous
  Country: FR (occurrence: FR)
  Receive Date: 20180524
  Receipt Date: 20180524
  Transmission Date: 20180711
  Serious: Yes (Other)
  Sender: FDA-Public Use
  Company Number: FR-ASTRAZENECA-2018SE66936

PATIENT
  Sex: Male

DRUGS (1)
  1. CRESTOR [Suspect]
     Active Substance: ROSUVASTATIN CALCIUM
     Indication: HYPERCHOLESTEROLAEMIA
     Dosage: 5.0MG UNKNOWN
     Route: 048

REACTIONS (4)
  - Fatigue [Unknown]
  - Arthralgia [Recovering/Resolving]
  - Transaminases increased [Unknown]
  - Muscle contracture [Recovering/Resolving]
